FAERS Safety Report 22817205 (Version 6)
Quarter: 2025Q2

REPORT INFORMATION
  Report Type: Report from Study
  Country: CA (occurrence: CA)
  Receive Date: 20230812
  Receipt Date: 20250423
  Transmission Date: 20250716
  Serious: Yes (Other)
  Sender: TAKEDA
  Company Number: CA-TAKEDA-2023TUS078581

PATIENT
  Age: 30 Year
  Sex: Female

DRUGS (14)
  1. VEDOLIZUMAB [Suspect]
     Active Substance: VEDOLIZUMAB
     Indication: Colitis ulcerative
  2. VEDOLIZUMAB [Suspect]
     Active Substance: VEDOLIZUMAB
     Dosage: 300 MILLIGRAM, Q4WEEKS
     Dates: start: 20230810
  3. VEDOLIZUMAB [Suspect]
     Active Substance: VEDOLIZUMAB
     Dosage: 300 MILLIGRAM, Q4WEEKS
  4. VEDOLIZUMAB [Suspect]
     Active Substance: VEDOLIZUMAB
     Dosage: 300 MILLIGRAM, Q4WEEKS
  5. RENFLEXIS [Concomitant]
     Active Substance: INFLIXIMAB-ABDA
  6. ELIQUIS [Concomitant]
     Active Substance: APIXABAN
  7. PANTOPRAZOLE [Concomitant]
     Active Substance: PANTOPRAZOLE
  8. ESCITALOPRAM [Concomitant]
     Active Substance: ESCITALOPRAM OXALATE
  9. IRON [Concomitant]
     Active Substance: IRON
     Indication: Supplementation therapy
  10. AMOXICILLIN [Concomitant]
     Active Substance: AMOXICILLIN
     Dates: start: 20240501, end: 20240505
  11. TYLENOL [Concomitant]
     Active Substance: ACETAMINOPHEN
  12. PROPRANOLOL [Concomitant]
     Active Substance: PROPRANOLOL HYDROCHLORIDE
  13. DOMPERIDONE [Concomitant]
     Active Substance: DOMPERIDONE
  14. TRAZODONE [Concomitant]
     Active Substance: TRAZODONE HYDROCHLORIDE

REACTIONS (7)
  - Colitis ulcerative [Unknown]
  - Gastric haemorrhage [Recovering/Resolving]
  - Frequent bowel movements [Unknown]
  - Gastrointestinal pain [Not Recovered/Not Resolved]
  - Therapeutic product effect decreased [Not Recovered/Not Resolved]
  - Off label use [Unknown]
  - Back pain [Not Recovered/Not Resolved]

NARRATIVE: CASE EVENT DATE: 20230810
